FAERS Safety Report 19732990 (Version 1)
Quarter: 2021Q3

REPORT INFORMATION
  Report Type: Spontaneous
  Country: US (occurrence: US)
  Receive Date: 20210822
  Receipt Date: 20210822
  Transmission Date: 20211014
  Serious: Yes (Hospitalization, Other)
  Sender: FDA-Public Use
  Company Number: None

PATIENT
  Age: 67 Year
  Sex: Male

DRUGS (17)
  1. CARVEDILOL. [Concomitant]
     Active Substance: CARVEDILOL
  2. BUSPIRONE [Concomitant]
     Active Substance: BUSPIRONE HYDROCHLORIDE
  3. BUDESONIDE. [Concomitant]
     Active Substance: BUDESONIDE
  4. LISINOPRIL. [Concomitant]
     Active Substance: LISINOPRIL
  5. FERRUS SULFATE [Concomitant]
  6. SENNOSIDE [Concomitant]
     Active Substance: SENNOSIDES
  7. CLONAZEPAM. [Concomitant]
     Active Substance: CLONAZEPAM
  8. OMEPRAZOLE. [Concomitant]
     Active Substance: OMEPRAZOLE
  9. REGEN?COV [Suspect]
     Active Substance: CASIRIVIMAB\IMDEVIMAB
     Indication: SUSPECTED COVID-19
     Dates: start: 20210806, end: 20210806
  10. FOLIC ACID. [Concomitant]
     Active Substance: FOLIC ACID
  11. VITAMIN B12 [Concomitant]
     Active Substance: CYANOCOBALAMIN
  12. DILTIAZEM. [Concomitant]
     Active Substance: DILTIAZEM
  13. ALBUTEROL SULFATE. [Concomitant]
     Active Substance: ALBUTEROL SULFATE
  14. VITAMIN C [Concomitant]
     Active Substance: ASCORBIC ACID
  15. IPRATROPIUM [Concomitant]
     Active Substance: IPRATROPIUM
  16. BACLOFEN. [Concomitant]
     Active Substance: BACLOFEN
  17. REMERON [Concomitant]
     Active Substance: MIRTAZAPINE

REACTIONS (8)
  - Confusional state [None]
  - Slow speech [None]
  - Disturbance in attention [None]
  - Hypokinesia [None]
  - Blood pressure decreased [None]
  - Muscle spasms [None]
  - Fatigue [None]
  - Asthenia [None]

NARRATIVE: CASE EVENT DATE: 20210806
